FAERS Safety Report 11392610 (Version 4)
Quarter: 2015Q3

REPORT INFORMATION
  Report Type: Spontaneous
  Country: US (occurrence: US)
  Receive Date: 20150818
  Receipt Date: 20150915
  Transmission Date: 20151125
  Serious: Yes (Other)
  Sender: FDA-Public Use
  Company Number: US-009507513-1508USA004441

PATIENT
  Age: 71 Year
  Sex: Male

DRUGS (2)
  1. SINEMET [Suspect]
     Active Substance: CARBIDOPA\LEVODOPA
     Indication: PARKINSON^S DISEASE
     Dosage: UNK, Q4H
     Route: 048
  2. SINEMET [Suspect]
     Active Substance: CARBIDOPA\LEVODOPA
     Dosage: UNK, Q4H
     Route: 048

REACTIONS (4)
  - Wrong drug administered [Unknown]
  - Product solubility abnormal [Unknown]
  - Product colour issue [Unknown]
  - Gingival operation [Unknown]

NARRATIVE: CASE EVENT DATE: 20150817
